FAERS Safety Report 9269596 (Version 1)
Quarter: 2013Q2

REPORT INFORMATION
  Report Type: Spontaneous
  Country: US (occurrence: US)
  Receive Date: 20130503
  Receipt Date: 20130503
  Transmission Date: 20140414
  Serious: Yes (Death)
  Sender: FDA-Public Use
  Company Number: US-NOVOPROD-376890

PATIENT
  Age: 44 Year
  Sex: Male
  Weight: 204.8 kg

DRUGS (4)
  1. VICTOZA [Suspect]
     Indication: BLOOD GLUCOSE FLUCTUATION
     Dosage: 0.6 MG, QD
     Route: 058
     Dates: start: 20130314, end: 20130321
  2. VICTOZA [Suspect]
     Dosage: 1.2 MG, QD
     Route: 058
     Dates: start: 20130322
  3. NOVOLOG FLEXPEN [Suspect]
     Indication: PRODUCT USED FOR UNKNOWN INDICATION
     Dosage: SLIDING SCALE
     Route: 058
  4. LEVEMIR FLEXPEN [Suspect]
     Indication: PRODUCT USED FOR UNKNOWN INDICATION
     Route: 058

REACTIONS (1)
  - Myocardial infarction [Fatal]
